FAERS Safety Report 7571975-7 (Version None)
Quarter: 2011Q2

REPORT INFORMATION
  Report Type: 
  Country: None (occurrence: None)
  Receive Date: 20110624
  Receipt Date: 20110608
  Transmission Date: 20111010
  Serious: Yes (Hospitalization)
  Sender: FDA-Public Use
  Company Number: US-JNJFOC-20110604294

PATIENT
  Age: 15 Year
  Sex: Female
  Weight: 49.9 kg

DRUGS (9)
  1. ACETAMINOPHEN [Concomitant]
     Indication: PREMEDICATION
     Dates: start: 20110509
  2. REMICADE [Suspect]
     Indication: PRODUCT USED FOR UNKNOWN INDICATION
     Route: 042
  3. REMICADE [Suspect]
     Route: 042
     Dates: start: 20100501
  4. SOLU-CORTEF [Concomitant]
     Indication: PREMEDICATION
     Dates: start: 20110509
  5. REMICADE [Suspect]
     Route: 042
     Dates: start: 20110509
  6. BENADRYL [Concomitant]
     Indication: PREMEDICATION
     Dates: start: 20110509
  7. REMICADE [Suspect]
     Route: 042
     Dates: start: 20110426
  8. REMICADE [Suspect]
     Dosage: 2ND DOSE
     Route: 042
     Dates: start: 20100520
  9. PREDNISONE [Concomitant]

REACTIONS (6)
  - CUSHINGOID [None]
  - TRANSAMINASES INCREASED [None]
  - DYSPNOEA [None]
  - LIP SWELLING [None]
  - RASH PRURITIC [None]
  - INFUSION RELATED REACTION [None]
